FAERS Safety Report 24530021 (Version 1)
Quarter: 2024Q4

REPORT INFORMATION
  Report Type: Spontaneous
  Country: PL (occurrence: PL)
  Receive Date: 20241021
  Receipt Date: 20241021
  Transmission Date: 20250115
  Serious: Yes (Other)
  Sender: SANOFI AVENTIS
  Company Number: None

PATIENT
  Age: 48 Year
  Sex: Female
  Weight: 83 kg

DRUGS (6)
  1. METHOTREXATE [Suspect]
     Active Substance: METHOTREXATE
     Indication: Rheumatoid arthritis
     Dosage: 20 MG, QW; ORALLY FOR 2 MONTHS, THEN SUBCUTANEOUS FOR 4 MONTHS
     Route: 048
     Dates: start: 2015, end: 2015
  2. METHOTREXATE [Suspect]
     Active Substance: METHOTREXATE
     Dosage: 20 MG, QW; ORALLY FOR 2 MONTHS, THEN SUBCUTANEOUS FOR 4 MONTHS
     Route: 058
     Dates: start: 2015, end: 2015
  3. LEFLUNOMIDE [Suspect]
     Active Substance: LEFLUNOMIDE
     Indication: Rheumatoid arthritis
     Dosage: 20 MG, QD
     Route: 048
     Dates: start: 2016, end: 2016
  4. PLAQUENIL [Suspect]
     Active Substance: HYDROXYCHLOROQUINE SULFATE
     Indication: Rheumatoid arthritis
     Dosage: 200 MG
     Route: 048
     Dates: start: 20190803, end: 20190830
  5. SULFASALAZINE [Concomitant]
     Active Substance: SULFASALAZINE
     Indication: Rheumatoid arthritis
     Dosage: 2 G
     Route: 048
     Dates: start: 201904, end: 201905
  6. METHYLPREDNISOLONE [Concomitant]
     Active Substance: METHYLPREDNISOLONE
     Indication: Rheumatoid arthritis
     Dosage: UNK UNK, QW; 4-8 MG PER WEEK
     Route: 048
     Dates: start: 2015

REACTIONS (2)
  - Urticaria [Recovered/Resolved]
  - Hepatotoxicity [Recovered/Resolved]
